FAERS Safety Report 21229376 (Version 1)
Quarter: 2022Q3

REPORT INFORMATION
  Report Type: Spontaneous
  Country: FR (occurrence: FR)
  Receive Date: 20220818
  Receipt Date: 20220818
  Transmission Date: 20221026
  Serious: Yes (Other)
  Sender: FDA-Public Use
  Company Number: None

PATIENT
  Age: 67 Year
  Sex: Male

DRUGS (3)
  1. RITUXIMAB [Suspect]
     Active Substance: RITUXIMAB
     Indication: Lymphocytic lymphoma
     Dosage: 6 CYCLES IN TOTAL
     Route: 042
     Dates: start: 201704, end: 201709
  2. CYCLOPHOSPHAMIDE [Suspect]
     Active Substance: CYCLOPHOSPHAMIDE
     Indication: Lymphocytic lymphoma
     Dosage: 6 CYCLES IN TOTAL
     Route: 042
     Dates: start: 201704, end: 201709
  3. FLUDARABINE PHOSPHATE [Suspect]
     Active Substance: FLUDARABINE PHOSPHATE
     Indication: Lymphocytic lymphoma
     Dosage: 6 CYCLES IN TOTAL
     Route: 042
     Dates: start: 201704, end: 201709

REACTIONS (1)
  - Chronic myeloid leukaemia [Not Recovered/Not Resolved]
